FAERS Safety Report 9645672 (Version 1)
Quarter: 2013Q4

REPORT INFORMATION
  Report Type: Spontaneous
  Country: US (occurrence: None)
  Receive Date: 20131024
  Receipt Date: 20131024
  Transmission Date: 20140711
  Serious: Yes (Life-Threatening, Hospitalization)
  Sender: FDA-Public Use
  Company Number: None

PATIENT
  Age: 65 Year
  Sex: Female

DRUGS (13)
  1. ENBREL 25 MG / 0.5 ML SRYINGE IMMUNEX CORP [Suspect]
     Indication: RHEUMATOID ARTHRITIS
     Route: 058
  2. OXYCODONE [Concomitant]
  3. MORPHINE SULFATE [Concomitant]
  4. ITRACONAZOLE [Concomitant]
  5. METRONIDAZOLE [Concomitant]
  6. PENICILLIN [Concomitant]
  7. LEFLUNOMIDE [Concomitant]
  8. ALENDRONATE [Concomitant]
  9. ALLEGRA-D [Concomitant]
  10. PREDNISONE [Concomitant]
  11. HYDROCO/APAP [Concomitant]
  12. OMEPRAZOLE [Concomitant]
  13. LACTINEX GRANULES [Concomitant]

REACTIONS (1)
  - Lung infection [None]
